FAERS Safety Report 13722278 (Version 3)
Quarter: 2017Q4

REPORT INFORMATION
  Report Type: Report from Study
  Country: CA (occurrence: CA)
  Receive Date: 20170706
  Receipt Date: 20171024
  Transmission Date: 20180320
  Serious: Yes (Hospitalization, Other)
  Sender: FDA-Public Use
  Company Number: CA-GLAXOSMITHKLINE-CA2017GSK103883

PATIENT
  Age: 73 Year
  Sex: Male

DRUGS (2)
  1. TEVA-SALBUTAMOL HFA [Suspect]
     Active Substance: ALBUTEROL
     Indication: PRODUCT USED FOR UNKNOWN INDICATION
     Dosage: 100 ?G, UNK
  2. SALBUTAMOL SULPHATE [Suspect]
     Active Substance: ALBUTEROL SULFATE
     Indication: PRODUCT USED FOR UNKNOWN INDICATION
     Dosage: 1 MG/ML, UNK

REACTIONS (9)
  - Secretion discharge [Unknown]
  - Hypogammaglobulinaemia [Unknown]
  - Productive cough [Unknown]
  - Lower respiratory tract infection [Unknown]
  - Asthma [Unknown]
  - Blood count abnormal [Unknown]
  - Cough [Unknown]
  - Heart rate increased [Unknown]
  - Wheezing [Unknown]

NARRATIVE: CASE EVENT DATE: 201605
